FAERS Safety Report 5398497-6 (Version None)
Quarter: 2007Q3

REPORT INFORMATION
  Report Type: 
  Country: None (occurrence: None)
  Receive Date: 20070726
  Receipt Date: 20070125
  Transmission Date: 20080115
  Serious: No
  Sender: FDA-Public Use
  Company Number: US-AMGEN-KDL208800

PATIENT
  Sex: Male
  Weight: 71.3 kg

DRUGS (4)
  1. PROCRIT [Suspect]
     Indication: ANAEMIA OF MALIGNANT DISEASE
     Dates: start: 20070118
  2. GEMZAR [Concomitant]
     Dates: start: 20061201
  3. PROTONIX [Concomitant]
     Dates: start: 20060901
  4. ALEXAN [Concomitant]

REACTIONS (3)
  - BONE PAIN [None]
  - OEDEMA PERIPHERAL [None]
  - PALPITATIONS [None]
